FAERS Safety Report 6157348-2 (Version None)
Quarter: 2009Q2

REPORT INFORMATION
  Report Type: 
  Country: None (occurrence: None)
  Receive Date: 20090416
  Receipt Date: 20090409
  Transmission Date: 20091009
  Serious: Yes (Other)
  Sender: FDA-Public Use
  Company Number: US-ABBOTT-09P-163-0567356-00

PATIENT
  Sex: Female
  Weight: 79.45 kg

DRUGS (9)
  1. HUMIRA [Suspect]
     Indication: RHEUMATOID ARTHRITIS
     Route: 058
     Dates: start: 20090101, end: 20090319
  2. HUMIRA [Suspect]
     Dosage: HUMIRA PEN - 1 INJECTION EVERY TWO WEEKS
     Route: 058
     Dates: start: 20081002, end: 20090101
  3. HUMIRA [Suspect]
     Dates: start: 20090409
  4. LISINOPRIL AND HYDROCHLOROTHIAZIDE [Concomitant]
     Indication: DRUG USE FOR UNKNOWN INDICATION
  5. PRANDIN [Concomitant]
     Indication: TYPE 2 DIABETES MELLITUS
     Route: 048
  6. ARAVA [Concomitant]
     Indication: DRUG USE FOR UNKNOWN INDICATION
     Route: 048
  7. PREDNISONE TAB [Concomitant]
     Indication: DRUG USE FOR UNKNOWN INDICATION
     Route: 048
  8. ATENOLOL [Concomitant]
     Indication: DRUG USE FOR UNKNOWN INDICATION
     Route: 048
  9. ASPIRIN [Concomitant]
     Indication: DRUG USE FOR UNKNOWN INDICATION
     Route: 048
     Dates: end: 20090301

REACTIONS (3)
  - INJECTION SITE PAIN [None]
  - JOINT STIFFNESS [None]
  - NERVE COMPRESSION [None]
